FAERS Safety Report 6944451-X (Version None)
Quarter: 2010Q3

REPORT INFORMATION
  Report Type: 
  Country: None (occurrence: None)
  Receive Date: 20100827
  Receipt Date: 20100817
  Transmission Date: 20110219
  Serious: Yes (Hospitalization, Other)
  Sender: FDA-Public Use
  Company Number: CA-PFIZER INC-2010098007

PATIENT
  Age: 43 Year
  Sex: Male

DRUGS (4)
  1. LYRICA [Suspect]
     Indication: TREMOR
     Dosage: 75 MG, 1X/DAY AT BEDTIME
     Route: 048
     Dates: start: 20100705, end: 20100711
  2. LAMICTAL [Concomitant]
     Indication: EPILEPSY
     Dosage: 100 MG AND 25 MG DOSES AT BEDTIME
     Route: 048
  3. METFORMIN [Concomitant]
     Indication: HYPERGLYCAEMIA
     Dosage: ONE HALF A 500 CAPSULE, THREE TIMES PER DAY
     Route: 048
  4. DIVALPROEX SODIUM [Concomitant]
     Indication: EPILEPSY
     Dosage: 500 MG, 3 CAPSULES IN AM, 2 CAPSULES IN PM AND 2 CAPSULES AT BEDTIME

REACTIONS (1)
  - EPILEPSY [None]
